FAERS Safety Report 4491736-5 (Version None)
Quarter: 2004Q4

REPORT INFORMATION
  Report Type: 
  Country: None (occurrence: None)
  Receive Date: 20041103
  Receipt Date: 20041025
  Transmission Date: 20050328
  Serious: Yes (Other)
  Sender: FDA-Public Use
  Company Number: US-MERCK-0410USA03674

PATIENT
  Age: 66 Year
  Sex: Male

DRUGS (3)
  1. VIOXX [Suspect]
     Indication: ARTHRITIS
     Route: 048
     Dates: start: 19991001, end: 20040930
  2. ALBUTEROL [Concomitant]
     Route: 065
  3. WELLBUTRIN [Concomitant]
     Route: 065

REACTIONS (2)
  - AORTIC ANEURYSM [None]
  - INTRACRANIAL ANEURYSM [None]
